FAERS Safety Report 22106299 (Version 2)
Quarter: 2023Q2

REPORT INFORMATION
  Report Type: Spontaneous
  Country: US (occurrence: US)
  Receive Date: 20230317
  Receipt Date: 20230529
  Transmission Date: 20230721
  Serious: No
  Sender: FDA-Public Use
  Company Number: US-SA-SAC20230310001685

PATIENT
  Sex: Female

DRUGS (1)
  1. DUPIXENT [Suspect]
     Active Substance: DUPILUMAB
     Indication: Eosinophilic oesophagitis
     Dosage: 300 MG, QW
     Route: 058
     Dates: start: 202212, end: 202303

REACTIONS (5)
  - Dysmenorrhoea [Unknown]
  - Menstruation delayed [Unknown]
  - Oesophagitis [Unknown]
  - Gluten sensitivity [Unknown]
  - Drug ineffective [Unknown]
